FAERS Safety Report 8920440 (Version 1)
Quarter: 2012Q4

REPORT INFORMATION
  Report Type: 
  Country: US (occurrence: US)
  Receive Date: 20121122
  Receipt Date: 20121122
  Transmission Date: 20130627
  Serious: Yes (Other)
  Sender: FDA-Public Use
  Company Number: CHPA2012US023517

PATIENT
  Age: 66 Year
  Sex: Female

DRUGS (2)
  1. EXCEDRIN MIGRAINE [Suspect]
     Indication: MIGRAINE
     Dosage: 2 DF, AT LEAST TWICE A MONTH
     Route: 048
     Dates: start: 1998, end: 2011
  2. EXCEDRIN MIGRAINE [Suspect]
     Indication: MIGRAINE
     Dosage: 2 DF, AT LEAST TWICE A MONTH
     Route: 048
     Dates: start: 1998, end: 2011

REACTIONS (2)
  - Hypertension [Not Recovered/Not Resolved]
  - Bunion [Recovered/Resolved]
